FAERS Safety Report 5473613-6 (Version None)
Quarter: 2007Q4

REPORT INFORMATION
  Report Type: 
  Country: None (occurrence: None)
  Receive Date: 20071001
  Receipt Date: 20070919
  Transmission Date: 20080405
  Serious: Yes (Hospitalization, Congenital Anomaly)
  Sender: FDA-Public Use
  Company Number: JP-PFIZER INC-2005014292

PATIENT
  Sex: Male
  Weight: 3.81 kg

DRUGS (3)
  1. ALPRAZOLAM [Suspect]
     Route: 065
  2. DEPAS [Suspect]
     Route: 065
  3. LUDIOMIL [Suspect]
     Route: 065

REACTIONS (10)
  - CONGENITAL ANOMALY [None]
  - DECREASED ACTIVITY [None]
  - DRUG EXPOSURE DURING PREGNANCY [None]
  - DRUG WITHDRAWAL SYNDROME [None]
  - FEEDING DISORDER [None]
  - MUSCULAR DYSTROPHY [None]
  - RHABDOMYOLYSIS [None]
  - SOMNOLENCE [None]
  - STRESS [None]
  - WEIGHT DECREASED [None]
